FAERS Safety Report 9118903 (Version 1)
Quarter: 2013Q1

REPORT INFORMATION
  Report Type: Spontaneous
  Country: CH (occurrence: None)
  Receive Date: 20130130
  Receipt Date: 20130130
  Transmission Date: 20140127
  Serious: Yes (Hospitalization)
  Sender: FDA-Public Use
  Company Number: 20130023

PATIENT
  Age: 38 Year
  Sex: Female

DRUGS (2)
  1. VENOFER [Suspect]
     Route: 042
     Dates: start: 20121117, end: 20121120
  2. ESOMEPRAZOLE MAGNESIUM [Suspect]
     Route: 048
     Dates: start: 20121111, end: 20121120

REACTIONS (1)
  - Thrombocytopenia [None]
